FAERS Safety Report 11267957 (Version 1)
Quarter: 2015Q3

REPORT INFORMATION
  Report Type: Spontaneous
  Country: US (occurrence: US)
  Receive Date: 20150713
  Receipt Date: 20150713
  Transmission Date: 20151125
  Serious: Yes (Hospitalization, Other)
  Sender: FDA-Public Use
  Company Number: US-MPIJNJ-2014MPI000920

PATIENT
  Age: 56 Year
  Sex: Male

DRUGS (8)
  1. REVLIMID [Suspect]
     Active Substance: LENALIDOMIDE
     Dosage: 25 MG, QOD
     Route: 048
     Dates: start: 20140210
  2. VELCADE [Suspect]
     Active Substance: BORTEZOMIB
     Dosage: 2 MG
     Route: 042
     Dates: start: 20140203
  3. DEXAMETHASONE. [Concomitant]
     Active Substance: DEXAMETHASONE
     Indication: PRODUCT USED FOR UNKNOWN INDICATION
  4. REVLIMID [Suspect]
     Active Substance: LENALIDOMIDE
     Indication: PLASMA CELL MYELOMA
     Dosage: 25 MG,14 IN 28 D
     Route: 048
     Dates: start: 20131231, end: 20140102
  5. PREDNISONE. [Concomitant]
     Active Substance: PREDNISONE
     Indication: PRODUCT USED FOR UNKNOWN INDICATION
  6. VELCADE [Suspect]
     Active Substance: BORTEZOMIB
     Indication: PLASMA CELL MYELOMA
     Dosage: 2.6 MG
     Route: 058
     Dates: start: 20131230
  7. VELCADE [Suspect]
     Active Substance: BORTEZOMIB
     Dosage: 2 MG
     Route: 058
     Dates: start: 20140127
  8. REVLIMID [Suspect]
     Active Substance: LENALIDOMIDE
     Dosage: 25 MG, 14 IN 28 D
     Route: 048
     Dates: start: 201401, end: 20140127

REACTIONS (2)
  - Pyrexia [Recovered/Resolved]
  - Blood count abnormal [Recovered/Resolved]

NARRATIVE: CASE EVENT DATE: 20140102
